FAERS Safety Report 21814038 (Version 1)
Quarter: 2023Q1

REPORT INFORMATION
  Report Type: Spontaneous
  Country: JP (occurrence: JP)
  Receive Date: 20230104
  Receipt Date: 20230104
  Transmission Date: 20230417
  Serious: Yes (Disabling)
  Sender: FDA-Public Use
  Company Number: JP-002147023-NVSJ2022JP277148

PATIENT
  Age: 46 Year
  Sex: Female

DRUGS (1)
  1. DECADRON (DEXAMETHASONE SODIUM PHOSPHATE) [Suspect]
     Active Substance: DEXAMETHASONE SODIUM PHOSPHATE
     Indication: Product used for unknown indication
     Dosage: 1.65 MG
     Route: 065
     Dates: start: 201409, end: 201409

REACTIONS (2)
  - Musculoskeletal disorder [Unknown]
  - Osteonecrosis [Unknown]
